FAERS Safety Report 18079511 (Version 1)
Quarter: 2020Q3

REPORT INFORMATION
  Report Type: Spontaneous
  Country: US (occurrence: US)
  Receive Date: 20200727
  Receipt Date: 20200727
  Transmission Date: 20201103
  Serious: Yes (Hospitalization)
  Sender: FDA-Public Use
  Company Number: None

PATIENT
  Sex: Female
  Weight: 72.58 kg

DRUGS (3)
  1. DEXATHASONE [Concomitant]
     Dates: start: 20200720
  2. ZOSYN [Concomitant]
     Active Substance: PIPERACILLIN SODIUM\TAZOBACTAM SODIUM
     Dates: start: 20200720
  3. NEXTERONE [Suspect]
     Active Substance: AMIODARONE HYDROCHLORIDE
     Indication: HEART RATE INCREASED
     Route: 041

REACTIONS (3)
  - Fatigue [None]
  - Hallucination [None]
  - Delusion [None]
